FAERS Safety Report 18216151 (Version 2)
Quarter: 2020Q3

REPORT INFORMATION
  Report Type: Spontaneous
  Country: JP (occurrence: JP)
  Receive Date: 20200901
  Receipt Date: 20200923
  Transmission Date: 20201103
  Serious: Yes (Hospitalization, Other)
  Sender: FDA-Public Use
  Company Number: JP-SA-2020SA231312

PATIENT

DRUGS (3)
  1. XYZAL [Suspect]
     Active Substance: LEVOCETIRIZINE DIHYDROCHLORIDE
     Indication: RASH
     Dosage: 5 MG, QD (AFTER DINNER)
     Route: 048
  2. XYZAL [Suspect]
     Active Substance: LEVOCETIRIZINE DIHYDROCHLORIDE
     Indication: OFF LABEL USE
  3. PROMAC [POLAPREZINC] [Suspect]
     Active Substance: POLAPREZINC
     Indication: GASTRIC ULCER
     Dosage: 1 DF, BID
     Route: 048

REACTIONS (6)
  - Product use in unapproved indication [Unknown]
  - Inhibitory drug interaction [Unknown]
  - Product use issue [Unknown]
  - Gastric ulcer [Unknown]
  - Rash [Recovered/Resolved]
  - Taste disorder [Unknown]
